FAERS Safety Report 9918568 (Version 1)
Quarter: 2014Q1

REPORT INFORMATION
  Report Type: Spontaneous
  Country: US (occurrence: US)
  Receive Date: 20140224
  Receipt Date: 20140224
  Transmission Date: 20141002
  Serious: No
  Sender: FDA-Public Use
  Company Number: US-BIOGENIDEC-2014BI015317

PATIENT
  Age: 57 Year
  Sex: Male

DRUGS (5)
  1. TECFIDERA [Suspect]
     Indication: MULTIPLE SCLEROSIS
     Route: 048
  2. BACLOFEN [Concomitant]
  3. IMITREX [Concomitant]
  4. PERCOCET [Concomitant]
  5. VIT D [Concomitant]

REACTIONS (1)
  - Neuropathy peripheral [Unknown]
